FAERS Safety Report 25962119 (Version 1)
Quarter: 2025Q4

REPORT INFORMATION
  Report Type: Spontaneous
  Country: EU (occurrence: EU)
  Receive Date: 20251027
  Receipt Date: 20251027
  Transmission Date: 20260117
  Serious: Yes (Death, Other)
  Sender: BAXTER
  Company Number: None

PATIENT
  Age: 45 Year
  Sex: Female
  Weight: 65 kg

DRUGS (4)
  1. PROPOFOL [Suspect]
     Active Substance: PROPOFOL
     Indication: Anaesthesia
     Dosage: 200 MG (FREQUENCY: 1, TOTAL)
     Route: 042
     Dates: start: 20250905, end: 20250905
  2. SUFENTA [Suspect]
     Active Substance: SUFENTANIL CITRATE
     Indication: Anaesthesia
     Dosage: 10 UG (FREQUENCY: 1, TOTAL)
     Route: 042
     Dates: start: 20250905, end: 20250905
  3. ROCURONIUM [Suspect]
     Active Substance: ROCURONIUM BROMIDE
     Indication: Anaesthesia
     Dosage: UNK
     Route: 042
     Dates: start: 20250905, end: 20250905
  4. KETAMINE [Suspect]
     Active Substance: KETAMINE
     Indication: Anaesthesia
     Dosage: 20 MG (FREQUENCY: 1, TOTAL)
     Route: 042
     Dates: start: 20250905, end: 20250905

REACTIONS (2)
  - Cardiac arrest [Fatal]
  - Bronchospasm [Fatal]

NARRATIVE: CASE EVENT DATE: 20250905
